FAERS Safety Report 5847393-6 (Version None)
Quarter: 2008Q4

REPORT INFORMATION
  Report Type: 
  Country: None (occurrence: None)
  Receive Date: 20080813
  Receipt Date: 20080729
  Transmission Date: 20090506
  Serious: Yes (Other)
  Sender: FDA-Public Use
  Company Number: 6044568

PATIENT
  Age: 68 Year
  Sex: Male

DRUGS (3)
  1. BISOPROLOL FUMARATE [Suspect]
     Indication: HYPERTENSION
     Dosage: ORAL, 7.5 MG (7.5 MG, 1 IN 1 D); ORAL
     Route: 048
     Dates: end: 20080515
  2. BISOPROLOL FUMARATE [Suspect]
     Dosage: INTRAVENOUS
     Route: 042
     Dates: end: 20080512
  3. ETOFIBRATE [Suspect]

REACTIONS (1)
  - RHABDOMYOLYSIS [None]
